FAERS Safety Report 26209069 (Version 1)
Quarter: 2025Q4

REPORT INFORMATION
  Report Type: Spontaneous
  Country: EU (occurrence: EU)
  Receive Date: 20251229
  Receipt Date: 20251229
  Transmission Date: 20260118
  Serious: Yes (Other)
  Sender: MYLAN
  Company Number: EU-DialogSolutions-SAAVPROD-PI850717-C1

PATIENT
  Age: 14 Year
  Sex: Male

DRUGS (4)
  1. TACROLIMUS [Suspect]
     Active Substance: TACROLIMUS
     Indication: Hodgkin^s disease refractory
     Dosage: 1 MILLIGRAM, QD
  2. FLUDARABINE [Suspect]
     Active Substance: FLUDARABINE PHOSPHATE
     Indication: Hodgkin^s disease refractory
     Dosage: UNK, (DAY-6 TO ?2) WITH PTCY-BASED GVHD PROPHYLAXIS)
  3. CYCLOPHOSPHAMIDE [Suspect]
     Active Substance: CYCLOPHOSPHAMIDE
     Indication: Hodgkin^s disease refractory
     Dosage: 50 MG/KG ON DAYS + 3 AND + 4,
  4. MYCOPHENOLATE MOFETIL [Suspect]
     Active Substance: MYCOPHENOLATE MOFETIL
     Indication: Hodgkin^s disease refractory
     Dosage: 7.5 MILLIGRAM/KILOGRAM, BID (7.5 MG/KG, Q12H)

REACTIONS (7)
  - Acute graft versus host disease in skin [Unknown]
  - Rash pruritic [Unknown]
  - Rash maculo-papular [Unknown]
  - Acute graft versus host disease in liver [Unknown]
  - Clostridium difficile infection [Unknown]
  - BK virus infection [Unknown]
  - Off label use [Unknown]
